FAERS Safety Report 4664200-8 (Version None)
Quarter: 2005Q2

REPORT INFORMATION
  Report Type: 
  Country: None (occurrence: None)
  Receive Date: 20050516
  Receipt Date: 20050503
  Transmission Date: 20051028
  Serious: Yes (Other)
  Sender: FDA-Public Use
  Company Number: 2005073261

PATIENT
  Age: 10 Year
  Sex: Male

DRUGS (1)
  1. AZITHROMYCIN [Suspect]
     Indication: CYSTIC FIBROSIS

REACTIONS (3)
  - AGGRESSION [None]
  - ANXIETY [None]
  - SUICIDAL IDEATION [None]
